FAERS Safety Report 6269038-6 (Version None)
Quarter: 2009Q3

REPORT INFORMATION
  Report Type: 
  Country: None (occurrence: None)
  Receive Date: 20090715
  Receipt Date: 20090707
  Transmission Date: 20100115
  Serious: Yes (Other)
  Sender: FDA-Public Use
  Company Number: B0582188A

PATIENT
  Age: 83 Month

DRUGS (4)
  1. REQUIP [Suspect]
     Indication: AKINESIA
     Dosage: 2MG THREE TIMES PER DAY
     Route: 048
  2. MADOPAR [Concomitant]
     Dosage: 300MG PER DAY
     Route: 048
  3. FLUTICASONE PROPIONATE [Concomitant]
     Dosage: 5MG PER DAY
     Route: 048
  4. PAXIL [Concomitant]
     Indication: DEPRESSION
     Dosage: 20MG PER DAY
     Route: 048

REACTIONS (3)
  - DELIRIUM [None]
  - HALLUCINATION, VISUAL [None]
  - PSYCHIATRIC SYMPTOM [None]
